FAERS Safety Report 21593630 (Version 2)
Quarter: 2022Q4

REPORT INFORMATION
  Report Type: Spontaneous
  Country: JP (occurrence: JP)
  Receive Date: 20221115
  Receipt Date: 20221125
  Transmission Date: 20230113
  Serious: No
  Sender: FDA-Public Use
  Company Number: JP-MALLINCKRODT-T202205981

PATIENT
  Age: 60 Year
  Sex: Male

DRUGS (4)
  1. NITRIC OXIDE [Suspect]
     Active Substance: NITRIC OXIDE
     Indication: Pulmonary hypertension
     Dosage: 10 PPM (INHALATION )
     Route: 055
  2. NITRIC OXIDE [Suspect]
     Active Substance: NITRIC OXIDE
     Dosage: TAPERED OFF ON THIRD POSTOPERATIVE DAY (INHALATION)
     Route: 055
  3. NITRIC OXIDE [Suspect]
     Active Substance: NITRIC OXIDE
     Dosage: 10 PPM
     Route: 055
  4. NITRIC OXIDE [Suspect]
     Active Substance: NITRIC OXIDE
     Dosage: ON SEVENTH DAY, TAPPERD OFF (INHALATION )
     Route: 055

REACTIONS (2)
  - Pulmonary hypertension [Unknown]
  - Condition aggravated [Unknown]
